FAERS Safety Report 16931833 (Version 2)
Quarter: 2019Q4

REPORT INFORMATION
  Report Type: Spontaneous
  Country: IT (occurrence: IT)
  Receive Date: 20191017
  Receipt Date: 20191105
  Transmission Date: 20200122
  Serious: Yes (Other)
  Sender: FDA-Public Use
  Company Number: IT-009507513-2005-12-0523

PATIENT
  Age: 28 Year
  Sex: Male

DRUGS (4)
  1. RIBAVIRIN. [Suspect]
     Active Substance: RIBAVIRIN
     Indication: CHRONIC HEPATITIS C
     Dosage: DOSES/INT-DURATION-UNIT: 1-1-804, DOSE: 1000 MG
     Dates: start: 200102, end: 200107
  2. INTRON A [Suspect]
     Active Substance: INTERFERON ALFA-2B
     Indication: CHRONIC HEPATITIS C
     Dosage: 6 MEGA-INTERNATIONAL UNIT, THREE TIMES WEEKLY
     Route: 065
  3. INTRON A [Suspect]
     Active Substance: INTERFERON ALFA-2B
     Dosage: 3 MEGA-INTERNATIONAL UNIT, QW
     Route: 065
  4. RIBAVIRIN. [Suspect]
     Active Substance: RIBAVIRIN
     Dosage: DOSES/INT-DURATION-UNIT: 1-1-804
     Dates: start: 200107, end: 2001

REACTIONS (1)
  - Colitis ulcerative [Recovering/Resolving]

NARRATIVE: CASE EVENT DATE: 200107
